FAERS Safety Report 16792926 (Version 42)
Quarter: 2023Q4

REPORT INFORMATION
  Report Type: Spontaneous
  Country: GB (occurrence: GB)
  Receive Date: 20190910
  Receipt Date: 20231018
  Transmission Date: 20240110
  Serious: Yes (Death, Congenital Anomaly, Other)
  Sender: FDA-Public Use
  Company Number: GB-MYLANLABS-2019M1078696

PATIENT
  Age: 4 Day
  Sex: Male
  Weight: 2.855 kg

DRUGS (35)
  1. ABACAVIR [Suspect]
     Active Substance: ABACAVIR
     Indication: HIV infection
     Dosage: 1 DOSAGE FORM, ONCE A DAY
     Route: 064
  2. ABACAVIR [Suspect]
     Active Substance: ABACAVIR
     Dosage: 400 MILLIGRAM, ONCE A DAY
     Route: 064
  3. ABACAVIR [Suspect]
     Active Substance: ABACAVIR
     Indication: HIV infection
     Dosage: 1 DOSAGE FORM, ONCE A DAY
     Route: 064
  4. ABACAVIR [Suspect]
     Active Substance: ABACAVIR
     Dosage: 400 DOSAGE FORM, ONCE A DAY
     Route: 064
  5. ABACAVIR\LAMIVUDINE [Suspect]
     Active Substance: ABACAVIR\LAMIVUDINE
     Indication: HIV infection
     Dosage: 1 DOSAGE FORM, ONCE A DAY,
     Route: 064
  6. ABACAVIR\LAMIVUDINE [Suspect]
     Active Substance: ABACAVIR\LAMIVUDINE
     Dosage: 400 DOSAGE FORM, ONCE A DAY
     Route: 064
  7. ABACAVIR\LAMIVUDINE [Suspect]
     Active Substance: ABACAVIR\LAMIVUDINE
     Dosage: 600 MILLIGRAM, ONCE A DAY
     Route: 064
  8. ABACAVIR\LAMIVUDINE [Suspect]
     Active Substance: ABACAVIR\LAMIVUDINE
     Dosage: 300 MILLIGRAM, ONCE A DAY
     Route: 064
  9. LAMIVUDINE [Suspect]
     Active Substance: LAMIVUDINE
     Indication: HIV infection
     Dosage: 1 DOSAGE FORM, ONCE A DAY
     Route: 064
  10. LAMIVUDINE [Suspect]
     Active Substance: LAMIVUDINE
     Dosage: 400 MILLIGRAM, ONCE A DAY
     Route: 064
  11. LAMIVUDINE [Suspect]
     Active Substance: LAMIVUDINE
     Indication: HIV infection
     Dosage: 1 DOSAGE FORM, ONCE A DAY
     Route: 064
  12. LAMIVUDINE [Suspect]
     Active Substance: LAMIVUDINE
     Dosage: 1 DOSAGE FORM, QD (POWDER FOR INFUSION), DURING FIRST TRIMESTER;
     Route: 064
  13. LAMIVUDINE AND ZIDOVUDINE [Suspect]
     Active Substance: LAMIVUDINE\ZIDOVUDINE
     Indication: HIV infection
     Dosage: 900 MILLIGRAM, ONCE A DAY
     Route: 064
  14. NEVIRAPINE [Suspect]
     Active Substance: NEVIRAPINE
     Indication: HIV infection
     Dosage: 400 MILLIGRAM, ONCE A DAY
     Route: 064
  15. NEVIRAPINE [Suspect]
     Active Substance: NEVIRAPINE
     Indication: HIV infection
     Dosage: 1 DOSAGE FORM
     Route: 064
  16. NEVIRAPINE [Suspect]
     Active Substance: NEVIRAPINE
     Dosage: 400 MILLIGRAM, ONCE A DAY
     Route: 064
  17. ABACAVIR HYDROCHLORIDE [Suspect]
     Active Substance: ABACAVIR HYDROCHLORIDE
     Indication: HIV infection
     Dosage: 1 DOSAGE FORM, ONCE A DAY
     Route: 064
  18. ABACAVIR HYDROCHLORIDE [Suspect]
     Active Substance: ABACAVIR HYDROCHLORIDE
     Dosage: 400 DOSAGE FORM, ONCE A DAY
     Route: 064
  19. ASPIRIN [Suspect]
     Active Substance: ASPIRIN
     Indication: Hypertension
     Dosage: UNK
     Route: 064
  20. ASPIRIN [Suspect]
     Active Substance: ASPIRIN
     Dosage: 1 DOSAGE FORM (1 TRIMESTER)
     Route: 064
  21. ASPIRIN [Suspect]
     Active Substance: ASPIRIN
     Dosage: UNK ( 1 TRIMESTER)
     Route: 064
  22. ASPIRIN [Suspect]
     Active Substance: ASPIRIN
     Dosage: 1 DOSAGE FORM,IN FIRST TRIMESTER (00002701);
     Route: 064
  23. COMBIVIR [Suspect]
     Active Substance: LAMIVUDINE\ZIDOVUDINE
     Indication: HIV infection
     Dosage: 900 MILLIGRAM, ONCE A DAY
     Route: 064
  24. LABETALOL [Suspect]
     Active Substance: LABETALOL\LABETALOL HYDROCHLORIDE
     Indication: Hypertension
     Dosage: UNK (39 WEEKS);
     Route: 064
  25. LABETALOL [Suspect]
     Active Substance: LABETALOL\LABETALOL HYDROCHLORIDE
     Dosage: 1 DOSAGE FORM
     Route: 064
  26. LABETALOL [Suspect]
     Active Substance: LABETALOL\LABETALOL HYDROCHLORIDE
     Dosage: 1 DOSAGE FORM (1 TRIMESTER);
     Route: 064
  27. VIRAMUNE [Suspect]
     Active Substance: NEVIRAPINE
     Indication: HIV infection
     Dosage: 400 MILLIGRAM, ONCE A DAY (1 TRIMESTER)
     Route: 064
  28. VIRAMUNE [Suspect]
     Active Substance: NEVIRAPINE
     Dosage: UNK
     Route: 048
  29. VITAMIN D [Suspect]
     Active Substance: VITAMIN D NOS
     Indication: HIV infection
     Dosage: UNK,
     Route: 064
  30. ASPIRIN [Concomitant]
     Active Substance: ASPIRIN
     Indication: Hypertension
     Dosage: 1 DOSAGE FORM
     Route: 064
  31. ERGOCALCIFEROL [Concomitant]
     Active Substance: ERGOCALCIFEROL
     Indication: Product used for unknown indication
     Dosage: UNK
     Route: 064
  32. LABETALOL [Concomitant]
     Active Substance: LABETALOL\LABETALOL HYDROCHLORIDE
     Indication: Product used for unknown indication
     Dosage: 1 DOSAGE FORM
     Route: 065
  33. NIFEDIPINE [Concomitant]
     Active Substance: NIFEDIPINE
     Indication: Hypertension
     Dosage: UNK
     Route: 048
  34. VITAMIN D2 [Concomitant]
     Active Substance: ERGOCALCIFEROL
     Indication: Product used for unknown indication
     Dosage: UNK
     Route: 064
  35. VITAMIN D2 [Concomitant]
     Active Substance: ERGOCALCIFEROL
     Dosage: UNK
     Route: 064

REACTIONS (15)
  - Gene mutation [Fatal]
  - Atrioventricular septal defect [Fatal]
  - Trisomy 21 [Fatal]
  - Pulmonary hypertension [Fatal]
  - Dandy-Walker syndrome [Fatal]
  - Congenital central nervous system anomaly [Fatal]
  - Macrocephaly [Fatal]
  - Attention deficit hyperactivity disorder [Fatal]
  - Ataxia [Fatal]
  - Neurodevelopmental disorder [Fatal]
  - Speech disorder developmental [Fatal]
  - Pre-eclampsia [Fatal]
  - Polydactyly [Fatal]
  - Death [Fatal]
  - Foetal exposure during pregnancy [Fatal]

NARRATIVE: CASE EVENT DATE: 20110305
